FAERS Safety Report 10547252 (Version 2)
Quarter: 2015Q2

REPORT INFORMATION
  Report Type: Spontaneous
  Country: AR (occurrence: AR)
  Receive Date: 20141028
  Receipt Date: 20150420
  Transmission Date: 20150821
  Serious: Yes (Hospitalization)
  Sender: FDA-Public Use
  Company Number: AR-AMGEN-ARGSP2014082603

PATIENT
  Age: 31 Year
  Sex: Female

DRUGS (6)
  1. NAPROXENO / PARACETAMOL [Concomitant]
     Indication: RHEUMATOID ARTHRITIS
     Dosage: 750 MG, DAILY
     Dates: start: 1989
  2. CALCIMAX                           /00944201/ [Concomitant]
     Indication: OSTEOPOROSIS
     Dosage: 1 DF, DAILY
  3. METICORTEN [Concomitant]
     Active Substance: PREDNISONE
     Indication: RHEUMATOID ARTHRITIS
     Dosage: 10 MG, DAILY
     Dates: start: 1989
  4. ORAVIL                             /00318501/ [Concomitant]
     Indication: OSTEOPOROSIS
     Dosage: UNK
  5. ENBREL [Suspect]
     Active Substance: ETANERCEPT
     Indication: RHEUMATOID ARTHRITIS
     Dosage: 50 MG, WEEKLY
     Route: 065
     Dates: start: 20130525
  6. RISEDRONATO ALTER [Suspect]
     Active Substance: RISEDRONATE SODIUM
     Indication: OSTEOPOROSIS
     Dosage: UNK
     Route: 065

REACTIONS (6)
  - Fracture [Unknown]
  - Arthritis [Recovering/Resolving]
  - Overdose [Recovered/Resolved]
  - Osteoporosis [Unknown]
  - Liver disorder [Recovered/Resolved]
  - Poisoning [Recovered/Resolved]

NARRATIVE: CASE EVENT DATE: 201409
